FAERS Safety Report 5545724-8 (Version None)
Quarter: 2007Q4

REPORT INFORMATION
  Report Type: 
  Country: None (occurrence: None)
  Receive Date: 20071211
  Receipt Date: 20071206
  Transmission Date: 20080405
  Serious: Yes (Other)
  Sender: FDA-Public Use
  Company Number: US-GENENTECH-244445

PATIENT
  Sex: Female
  Weight: 136.96 kg

DRUGS (1)
  1. XOLAIR [Suspect]
     Indication: ASTHMA
     Dosage: 375 MG, Q2W
     Route: 058
     Dates: start: 20070301, end: 20070712

REACTIONS (3)
  - HEART RATE INCREASED [None]
  - HYPERSENSITIVITY [None]
  - MEDICATION ERROR [None]
